FAERS Safety Report 7108012-4 (Version None)
Quarter: 2010Q4

REPORT INFORMATION
  Report Type: 
  Country: None (occurrence: None)
  Receive Date: 20101117
  Receipt Date: 20101108
  Transmission Date: 20110411
  Serious: Yes (Hospitalization)
  Sender: FDA-Public Use
  Company Number: CH-ASTRAZENECA-2010SE52966

PATIENT
  Age: 23645 Day
  Sex: Female

DRUGS (8)
  1. FASLODEX [Suspect]
     Indication: BREAST CANCER
     Route: 030
     Dates: start: 20101007, end: 20101007
  2. OMEPRAZOLE [Concomitant]
  3. MS CONTIN [Concomitant]
     Indication: PAIN
  4. SPASMO URGENINE [Concomitant]
  5. LAXOBERON [Concomitant]
     Indication: CONSTIPATION
  6. DAFALGAN [Concomitant]
  7. PANGLOBULIN [Concomitant]
  8. ZOMETA [Concomitant]
     Dates: end: 20100921

REACTIONS (1)
  - HEPATITIS [None]
